FAERS Safety Report 4823372-2 (Version None)
Quarter: 2005Q4

REPORT INFORMATION
  Report Type: 
  Country: None (occurrence: None)
  Receive Date: 20051108
  Receipt Date: 20051108
  Transmission Date: 20060501
  Serious: Yes (Life-Threatening, Hospitalization)
  Sender: FDA-Public Use
  Company Number: None

PATIENT
  Age: 74 Year
  Sex: Male
  Weight: 74.4 kg

DRUGS (1)
  1. WARFARIN [Suspect]
     Dosage: 7.5 MG QD PO
     Route: 048

REACTIONS (7)
  - ECCHYMOSIS [None]
  - FATIGUE [None]
  - HAEMATOCHEZIA [None]
  - INTERNATIONAL NORMALISED RATIO INCREASED [None]
  - LABORATORY TEST ABNORMAL [None]
  - PROTHROMBIN TIME PROLONGED [None]
  - TONGUE DISORDER [None]
